FAERS Safety Report 4884365-2 (Version None)
Quarter: 2006Q1

REPORT INFORMATION
  Report Type: 
  Country: None (occurrence: None)
  Receive Date: 20060117
  Receipt Date: 20060117
  Transmission Date: 20060701
  Serious: Yes (Hospitalization)
  Sender: FDA-Public Use
  Company Number: None

PATIENT
  Age: 72 Year
  Sex: Female

DRUGS (8)
  1. CARDIZEM [Suspect]
     Indication: HYPERTENSION
  2. ATACAND [Concomitant]
  3. LORAZEPAM [Concomitant]
  4. CLONIDINE [Concomitant]
  5. TESSALON [Concomitant]
  6. Z-PAK [Concomitant]
  7. NORVASC [Concomitant]
  8. HYDROCHLOROTHIAZIDE [Concomitant]

REACTIONS (1)
  - BRADYCARDIA [None]
